FAERS Safety Report 4358848-8 (Version None)
Quarter: 2004Q2

REPORT INFORMATION
  Report Type: 
  Country: None (occurrence: None)
  Receive Date: 20040517
  Receipt Date: 20040506
  Transmission Date: 20050107
  Serious: Yes (Hospitalization)
  Sender: FDA-Public Use
  Company Number: US-BRISTOL-MYERS SQUIBB COMPANY-12580916

PATIENT
  Age: 82 Year
  Sex: Female
  Weight: 36 kg

DRUGS (5)
  1. CARBOPLATIN [Suspect]
     Indication: NON-SMALL CELL LUNG CANCER
     Route: 042
     Dates: start: 20040410, end: 20040410
  2. PACLITAXEL [Suspect]
     Indication: NON-SMALL CELL LUNG CANCER
     Route: 042
     Dates: start: 20040410, end: 20040410
  3. ALPRAZOLAM [Concomitant]
     Dates: start: 20040416
  4. SERTRALINE [Concomitant]
     Dates: start: 20040416
  5. PEGFILGRASTIM [Concomitant]
     Dates: start: 20040412, end: 20040412

REACTIONS (1)
  - MYOCARDIAL INFARCTION [None]
